FAERS Safety Report 9503286 (Version 1)
Quarter: 2013Q3

REPORT INFORMATION
  Report Type: Spontaneous
  Country: US (occurrence: US)
  Receive Date: 20130906
  Receipt Date: 20130906
  Transmission Date: 20140515
  Serious: Yes (Other)
  Sender: FDA-Public Use
  Company Number: US-TAKEDA-2013TUS000011

PATIENT
  Sex: 0

DRUGS (1)
  1. ACTOS [Suspect]
     Dosage: UNK
     Route: 048
     Dates: start: 201008, end: 201208

REACTIONS (4)
  - Cardiac failure congestive [Recovered/Resolved]
  - Hot flush [Recovered/Resolved]
  - Dyspnoea exertional [Recovered/Resolved]
  - Local swelling [Recovered/Resolved]
